FAERS Safety Report 26203051 (Version 1)
Quarter: 2025Q4

REPORT INFORMATION
  Report Type: Report from Study
  Country: US (occurrence: US)
  Receive Date: 20251226
  Receipt Date: 20251226
  Transmission Date: 20260117
  Serious: Yes (Other)
  Sender: ABBVIE
  Company Number: US-ABBVIE-6590051

PATIENT
  Age: 68 Year
  Sex: Male

DRUGS (1)
  1. VYALEV [Suspect]
     Active Substance: FOSCARBIDOPA\FOSLEVODOPA
     Indication: Parkinson^s disease
     Dosage: CONTINUOUS 24-HOUR INFUSION
     Route: 058
     Dates: start: 20250911

REACTIONS (4)
  - Restless legs syndrome [Not Recovered/Not Resolved]
  - Seizure [Recovered/Resolved]
  - Device issue [Recovered/Resolved]
  - Tremor [Unknown]

NARRATIVE: CASE EVENT DATE: 20250101
